FAERS Safety Report 6943463-X (Version None)
Quarter: 2010Q3

REPORT INFORMATION
  Report Type: 
  Country: None (occurrence: None)
  Receive Date: 20100826
  Receipt Date: 20100818
  Transmission Date: 20110219
  Serious: Yes (Other)
  Sender: FDA-Public Use
  Company Number: US-JNJCH-2010019047

PATIENT
  Age: 65 Year
  Sex: Male
  Weight: 68 kg

DRUGS (1)
  1. NEOSPORIN [Suspect]
     Indication: SCRATCH
     Dosage: TEXT:^FINGERTIPFUL^ MORNING AND NIGHT
     Route: 061

REACTIONS (2)
  - APPLICATION SITE ERYTHEMA [None]
  - SEPSIS [None]
